FAERS Safety Report 24233869 (Version 1)
Quarter: 2024Q3

REPORT INFORMATION
  Report Type: Spontaneous
  Country: US (occurrence: US)
  Receive Date: 20240821
  Receipt Date: 20240821
  Transmission Date: 20241017
  Serious: No
  Sender: SANOFI AVENTIS
  Company Number: US-SA-SAC20240820000062

PATIENT
  Age: 77 Year
  Sex: Male

DRUGS (8)
  1. DUPIXENT [Suspect]
     Active Substance: DUPILUMAB
     Indication: Product used for unknown indication
     Dosage: 300 MG, QOW
     Route: 058
     Dates: start: 202403
  2. ESCITALOPRAM [Concomitant]
     Active Substance: ESCITALOPRAM OXALATE
  3. HYDROXYZINE [Concomitant]
     Active Substance: HYDROXYZINE HYDROCHLORIDE
     Dosage: UNK
  4. LISINOPRIL [Concomitant]
     Active Substance: LISINOPRIL
  5. PANTOPRAZOLE [Concomitant]
     Active Substance: PANTOPRAZOLE
  6. PRIMIDONE [Concomitant]
     Active Substance: PRIMIDONE
  7. ROSUVASTATIN [Concomitant]
     Active Substance: ROSUVASTATIN\ROSUVASTATIN CALCIUM
  8. XARELTO [Concomitant]
     Active Substance: RIVAROXABAN

REACTIONS (1)
  - Myalgia [Recovered/Resolved]

NARRATIVE: CASE EVENT DATE: 20240101
